FAERS Safety Report 5636321-4 (Version None)
Quarter: 2008Q1

REPORT INFORMATION
  Report Type: 
  Country: None (occurrence: None)
  Receive Date: 20080225
  Receipt Date: 20080225
  Transmission Date: 20080703
  Serious: Yes (Life-Threatening, Disabling)
  Sender: FDA-Public Use
  Company Number: None

PATIENT
  Age: 61 Year
  Sex: Male
  Weight: 97.2 kg

DRUGS (10)
  1. HEPARIN [Suspect]
     Indication: CORONARY ARTERY BYPASS
     Dosage: 50,000 UNITS ONCE IV BOLUS; ONCE
     Route: 042
  2. HEPARIN [Suspect]
     Indication: MYOCARDIAL INFARCTION
     Dosage: 50,000 UNITS ONCE IV BOLUS; ONCE
     Route: 042
  3. NORVASC [Concomitant]
  4. LIPITOR [Concomitant]
  5. ZETIA [Concomitant]
  6. COREG [Concomitant]
  7. CLONIDINE [Concomitant]
  8. ASPIRIN [Concomitant]
  9. NICODERM [Concomitant]
  10. PLAVIX [Concomitant]

REACTIONS (2)
  - NO THERAPEUTIC RESPONSE [None]
  - PROCEDURAL HYPOTENSION [None]
